FAERS Safety Report 6260272-8 (Version None)
Quarter: 2009Q3

REPORT INFORMATION
  Report Type: 
  Country: None (occurrence: None)
  Receive Date: 20090708
  Receipt Date: 20090630
  Transmission Date: 20100115
  Serious: Yes (Hospitalization)
  Sender: FDA-Public Use
  Company Number: US-AVENTIS-200916212GDDC

PATIENT
  Age: 71 Year
  Sex: Male
  Weight: 82.3 kg

DRUGS (16)
  1. TAXOTERE [Suspect]
     Indication: HEAD AND NECK CANCER
     Route: 042
     Dates: start: 20090330, end: 20090330
  2. TAXOTERE [Suspect]
     Route: 042
     Dates: start: 20090519, end: 20090519
  3. CETUXIMAB [Suspect]
     Indication: HEAD AND NECK CANCER
     Dates: start: 20090323, end: 20090323
  4. CETUXIMAB [Suspect]
     Dates: start: 20090519, end: 20090519
  5. RADIATION THERAPY [Suspect]
     Indication: HEAD AND NECK CANCER
     Dates: start: 20090323, end: 20090520
  6. LANSOPRAZOLE [Concomitant]
  7. LEVOTHYROXINE SODIUM [Concomitant]
     Route: 048
  8. LIPITOR [Concomitant]
     Route: 048
  9. LOSARTAN POTASSIUM [Concomitant]
     Route: 048
  10. MAGNESIUM OXIDE [Concomitant]
     Route: 048
  11. MIRALAX [Concomitant]
     Route: 048
  12. NYSTATIN [Concomitant]
     Route: 061
  13. OXYCODONE [Concomitant]
     Route: 048
  14. PROTONIX [Concomitant]
     Route: 048
  15. SENNA [Concomitant]
     Dosage: DOSE: 2 TABS
     Route: 048
  16. ZOLPIDEM [Concomitant]
     Route: 048

REACTIONS (2)
  - AMAUROSIS FUGAX [None]
  - CEREBRAL ISCHAEMIA [None]
